FAERS Safety Report 23628301 (Version 1)
Quarter: 2024Q1

REPORT INFORMATION
  Report Type: Spontaneous
  Country: ES (occurrence: ES)
  Receive Date: 20240313
  Receipt Date: 20240313
  Transmission Date: 20240410
  Serious: Yes (Other)
  Sender: FDA-Public Use
  Company Number: ES-Karo Pharma-2154370

PATIENT
  Age: 70 Year
  Sex: Female

DRUGS (17)
  1. TERBINAFINE [Suspect]
     Active Substance: TERBINAFINE
     Dates: start: 20240102
  2. VORICONAZOLE [Suspect]
     Active Substance: VORICONAZOLE
  3. LEVOTHYROXINE [Concomitant]
     Active Substance: LEVOTHYROXINE\LEVOTHYROXINE SODIUM
  4. TACROLIMUS [Concomitant]
     Active Substance: TACROLIMUS
  5. IRON [Concomitant]
     Active Substance: IRON
  6. VALGANCICLOVIR [Concomitant]
     Active Substance: VALGANCICLOVIR
  7. METAMIZOLE [Concomitant]
     Active Substance: METAMIZOLE
  8. BISOPROLOL. [Concomitant]
     Active Substance: BISOPROLOL FUMARATE
  9. OMACOR [Concomitant]
     Active Substance: OMEGA-3-ACID ETHYL ESTERS
  10. OMEPRAZOLE [Concomitant]
     Active Substance: OMEPRAZOLE
  11. ONDANSETRON [Concomitant]
     Active Substance: ONDANSETRON
  12. ASPIRIN [Concomitant]
     Active Substance: ASPIRIN
  13. PREDNISONE [Concomitant]
     Active Substance: PREDNISONE
  14. ENOXAPARIN [Concomitant]
     Active Substance: ENOXAPARIN
  15. LORAZEPAM [Concomitant]
     Active Substance: LORAZEPAM
  16. FUROSEMIDE [Concomitant]
     Active Substance: FUROSEMIDE
  17. MICAFUNGIN [Suspect]
     Active Substance: MICAFUNGIN SODIUM

REACTIONS (1)
  - Drug ineffective [Unknown]
